FAERS Safety Report 5176673-5 (Version None)
Quarter: 2006Q4

REPORT INFORMATION
  Report Type: 
  Country: None (occurrence: None)
  Receive Date: 20061218
  Receipt Date: 20061113
  Transmission Date: 20070319
  Serious: Yes (Other)
  Sender: FDA-Public Use
  Company Number: JP-NOVOPROD-258669

PATIENT
  Age: 9 Year
  Sex: Female

DRUGS (2)
  1. NORDITROPIN [Suspect]
  2. AZATHIOPRINE [Concomitant]

REACTIONS (2)
  - DIABETES MELLITUS INSULIN-DEPENDENT [None]
  - GLOMERULONEPHRITIS PROLIFERATIVE [None]
